FAERS Safety Report 23568721 (Version 1)
Quarter: 2024Q1

REPORT INFORMATION
  Report Type: Spontaneous
  Country: IT (occurrence: IT)
  Receive Date: 20240227
  Receipt Date: 20240227
  Transmission Date: 20240409
  Serious: Yes (Disabling, Other)
  Sender: FDA-Public Use
  Company Number: IT-CHEPLA-2024001691

PATIENT
  Age: 4 Year
  Sex: Female

DRUGS (10)
  1. LEVETIRACETAM [Suspect]
     Active Substance: LEVETIRACETAM
     Indication: Product used for unknown indication
     Dosage: UNK
     Route: 065
  2. CLONAZEPAM [Suspect]
     Active Substance: CLONAZEPAM
     Indication: Epilepsy with myoclonic-atonic seizures
     Dosage: UNK
     Route: 048
  3. CLONAZEPAM [Suspect]
     Active Substance: CLONAZEPAM
     Dosage: SINGLE DOSE
     Route: 065
  4. CLONAZEPAM [Suspect]
     Active Substance: CLONAZEPAM
     Dosage: FROM 4 YEARS 10 MONTHS
     Route: 065
  5. ETHOSUXIMIDE [Suspect]
     Active Substance: ETHOSUXIMIDE
     Indication: Product used for unknown indication
     Dosage: FROM 4 YEARS 5 MONTHS
     Route: 065
  6. VALPROATE [Suspect]
     Active Substance: VALPROIC ACID
     Indication: Product used for unknown indication
     Dosage: FROM THE AGE OF 4 YEARS 3 MONTHS
     Route: 065
  7. CLOBAZAM [Concomitant]
     Active Substance: CLOBAZAM
     Indication: Product used for unknown indication
     Dosage: AT AGE 10 THE CLOBAZAM DOSE WAS SLOWLY REDUCED
     Route: 065
  8. MIDAZOLAM [Concomitant]
     Active Substance: MIDAZOLAM
     Indication: Product used for unknown indication
     Dosage: N FOR 7 DAYS (HIGHEST DOSAGE 6 MCG/KG/H
     Route: 065
  9. ACETAZOLAMIDE [Concomitant]
     Active Substance: ACETAZOLAMIDE
     Indication: Product used for unknown indication
     Dosage: UNK
     Route: 065
  10. HYDROCORTISONE [Concomitant]
     Active Substance: HYDROCORTISONE
     Indication: Epilepsy with myoclonic-atonic seizures
     Dosage: UNK
     Route: 042

REACTIONS (5)
  - Intellectual disability [Unknown]
  - Altered state of consciousness [Unknown]
  - Hyperammonaemia [Unknown]
  - Precocious puberty [Unknown]
  - Therapy non-responder [Unknown]
